FAERS Safety Report 17220226 (Version 2)
Quarter: 2020Q1

REPORT INFORMATION
  Report Type: Spontaneous
  Country: AU (occurrence: AU)
  Receive Date: 20191231
  Receipt Date: 20200108
  Transmission Date: 20200409
  Serious: Yes (Hospitalization)
  Sender: FDA-Public Use
  Company Number: AU-TEVA-2019-AU-1159003

PATIENT
  Age: 55 Year
  Sex: Female

DRUGS (17)
  1. TIGECYCLINE. [Suspect]
     Active Substance: TIGECYCLINE
     Indication: SKIN ULCER
     Dosage: 100 MG OVER 24 HOURS
     Route: 042
  2. RIFAMPICIN [Concomitant]
     Active Substance: RIFAMPIN
     Indication: EVIDENCE BASED TREATMENT
  3. LINEZOLID. [Concomitant]
     Active Substance: LINEZOLID
     Indication: MYCOBACTERIUM ABSCESSUS INFECTION
  4. DOXYCYCLINE. [Suspect]
     Active Substance: DOXYCYCLINE
     Indication: SKIN ULCER
     Dosage: 200 MILLIGRAM DAILY;
     Route: 065
  5. CLOFAZIMINE [Interacting]
     Active Substance: CLOFAZIMINE
     Indication: SKIN ULCER
     Dosage: 100 MILLIGRAM DAILY;
     Route: 048
  6. CLOFAZIMINE [Interacting]
     Active Substance: CLOFAZIMINE
     Indication: MYCOBACTERIUM ABSCESSUS INFECTION
  7. CEPHALEXIN. [Concomitant]
     Active Substance: CEPHALEXIN
     Indication: SKIN ULCER
     Route: 048
  8. CLARITHROMYCIN. [Concomitant]
     Active Substance: CLARITHROMYCIN
     Indication: SKIN ULCER
     Dosage: 1000 MILLIGRAM DAILY;
     Route: 048
  9. QUETIAPINE. [Interacting]
     Active Substance: QUETIAPINE
     Indication: INTERVERTEBRAL DISC PROTRUSION
     Dosage: 50 MILLIGRAM DAILY;
     Route: 065
  10. DOXYCYCLINE. [Suspect]
     Active Substance: DOXYCYCLINE
     Indication: MYCOBACTERIUM ABSCESSUS INFECTION
  11. QUETIAPINE. [Interacting]
     Active Substance: QUETIAPINE
     Dosage: 100 MILLIGRAM DAILY;
  12. AMIKACIN. [Suspect]
     Active Substance: AMIKACIN
     Indication: MYCOBACTERIUM ABSCESSUS INFECTION
     Dosage: 500 MILLIGRAM DAILY;
     Route: 042
  13. RIFAMPICIN [Concomitant]
     Active Substance: RIFAMPIN
     Indication: SKIN ULCER
     Route: 065
  14. TIGECYCLINE. [Suspect]
     Active Substance: TIGECYCLINE
     Indication: MYCOBACTERIUM ABSCESSUS INFECTION
  15. CLARITHROMYCIN. [Concomitant]
     Active Substance: CLARITHROMYCIN
     Indication: EVIDENCE BASED TREATMENT
  16. QUETIAPINE. [Suspect]
     Active Substance: QUETIAPINE
     Indication: BIPOLAR DISORDER
     Dosage: 150 MILLIGRAM DAILY;
     Route: 048
  17. LINEZOLID. [Concomitant]
     Active Substance: LINEZOLID
     Indication: SKIN ULCER
     Dosage: 400 MILLIGRAM DAILY;
     Route: 048

REACTIONS (6)
  - Drug interaction [Unknown]
  - Antipsychotic drug level decreased [Unknown]
  - Liver function test abnormal [Recovering/Resolving]
  - Oedema peripheral [Unknown]
  - Nephropathy toxic [Unknown]
  - Pathogen resistance [Unknown]
